FAERS Safety Report 23428322 (Version 1)
Quarter: 2024Q1

REPORT INFORMATION
  Report Type: Spontaneous
  Country: US (occurrence: None)
  Receive Date: 20240122
  Receipt Date: 20240122
  Transmission Date: 20240410
  Serious: Yes (Hospitalization)
  Sender: FDA-Public Use
  Company Number: None

PATIENT
  Age: 5 Year
  Sex: Male

DRUGS (7)
  1. EPIDIOLEX [Suspect]
     Active Substance: CANNABIDIOL
     Indication: Seizure
     Dosage: 1.7 ML BID G -TUBE
     Route: 050
     Dates: start: 2020
  2. CLONAZEPAM [Concomitant]
  3. ACETAMINOPHEN [Concomitant]
     Active Substance: ACETAMINOPHEN
  4. FYCOMPA [Concomitant]
     Active Substance: PERAMPANEL
  5. PHENOBARBITAL [Concomitant]
     Active Substance: PHENOBARBITAL
  6. LACOSAMIDE [Concomitant]
     Active Substance: LACOSAMIDE
  7. SENNA [Concomitant]
     Active Substance: SENNA LEAF\SENNOSIDES\SENNOSIDES A AND B

REACTIONS (1)
  - Seizure [None]

NARRATIVE: CASE EVENT DATE: 20240115
